FAERS Safety Report 5339932-9 (Version None)
Quarter: 2007Q2

REPORT INFORMATION
  Report Type: 
  Country: None (occurrence: None)
  Receive Date: 20070531
  Receipt Date: 20070523
  Transmission Date: 20071010
  Serious: Yes (Other)
  Sender: FDA-Public Use
  Company Number: US-AMGEN-US226000

PATIENT
  Sex: Male

DRUGS (4)
  1. SENSIPAR [Suspect]
     Indication: HYPERPARATHYROIDISM SECONDARY
     Dates: start: 20070501, end: 20070501
  2. DIATX [Concomitant]
  3. INSULIN [Concomitant]
  4. FOSRENOL [Concomitant]

REACTIONS (4)
  - AGGRESSION [None]
  - EMOTIONAL DISTRESS [None]
  - MOOD SWINGS [None]
  - PERSONALITY CHANGE [None]
